FAERS Safety Report 16542725 (Version 1)
Quarter: 2019Q3

REPORT INFORMATION
  Report Type: Spontaneous
  Country: SA (occurrence: SA)
  Receive Date: 20190709
  Receipt Date: 20190709
  Transmission Date: 20191004
  Serious: Yes (Other)
  Sender: FDA-Public Use
  Company Number: SA-BEH-2019103742

PATIENT
  Sex: Male
  Weight: 3.5 kg

DRUGS (2)
  1. ANTI-D IMMUNOGLOBULIN (INN) [Suspect]
     Active Substance: HUMAN RHO(D) IMMUNE GLOBULIN
     Indication: PRODUCT USED FOR UNKNOWN INDICATION
     Route: 064
  2. INDOMETHACIN [INDOMETACIN SODIUM] [Concomitant]
     Active Substance: INDOMETHACIN SODIUM
     Route: 065

REACTIONS (10)
  - Oxygen saturation decreased [Unknown]
  - Anaemia [Unknown]
  - Rhesus haemolytic disease of newborn [Unknown]
  - Lethargy [Unknown]
  - Jaundice cholestatic [Unknown]
  - Tachycardia [Unknown]
  - Inappropriate schedule of product administration [Unknown]
  - Jaundice [Unknown]
  - Maternal exposure during pregnancy [Unknown]
  - Pulmonary hypertension [Unknown]
